FAERS Safety Report 24414757 (Version 2)
Quarter: 2024Q4

REPORT INFORMATION
  Report Type: Report from Study
  Country: CA (occurrence: CA)
  Receive Date: 20241009
  Receipt Date: 20241109
  Transmission Date: 20250114
  Serious: Yes (Other)
  Sender: JOHNSON AND JOHNSON
  Company Number: CA-JNJFOC-20230722312

PATIENT
  Age: 37 Year
  Sex: Female
  Weight: 79 kg

DRUGS (3)
  1. REMICADE [Suspect]
     Active Substance: INFLIXIMAB
     Indication: Crohn^s disease
     Dosage: ON 11-JUL-2023 PATIENT RECEIVED 118TH INFUSION AND COMPLETED PARTIAL HARVEY-BRADSHAW SURVEY?EXPIRY D
     Route: 041
     Dates: start: 20100927
  2. REMICADE [Suspect]
     Active Substance: INFLIXIMAB
     Route: 041
     Dates: start: 20100927
  3. VITAMINS NOS [Concomitant]
     Active Substance: VITAMINS

REACTIONS (8)
  - Urinary bladder rupture [Recovering/Resolving]
  - Blood iron decreased [Not Recovered/Not Resolved]
  - Hysterectomy [Recovering/Resolving]
  - Ovarian cyst [Unknown]
  - Contusion [Unknown]
  - Abdominal pain [Not Recovered/Not Resolved]
  - Injury [Unknown]
  - Off label use [Unknown]

NARRATIVE: CASE EVENT DATE: 20230710
